FAERS Safety Report 12266337 (Version 5)
Quarter: 2016Q3

REPORT INFORMATION
  Report Type: Spontaneous
  Country: US (occurrence: US)
  Receive Date: 20160413
  Receipt Date: 20160713
  Transmission Date: 20161109
  Serious: Yes (Other)
  Sender: FDA-Public Use
  Company Number: US-009507513-1604USA007889

PATIENT
  Age: 21 Year
  Sex: Female
  Weight: 65.31 kg

DRUGS (1)
  1. NEXPLANON [Suspect]
     Active Substance: ETONOGESTREL
     Indication: CONTRACEPTION
     Dosage: STRENGTH 68 MG/ ONCE EVERY 3 YEARS
     Route: 059
     Dates: start: 20160407, end: 20160413

REACTIONS (6)
  - Migration of implanted drug [Recovered/Resolved]
  - Device expulsion [Recovered/Resolved]
  - Implant site pain [Not Recovered/Not Resolved]
  - Implant site ulcer [Unknown]
  - Complication associated with device [Recovered/Resolved]
  - Pain [Not Recovered/Not Resolved]

NARRATIVE: CASE EVENT DATE: 201604
